FAERS Safety Report 21878744 (Version 1)
Quarter: 2023Q1

REPORT INFORMATION
  Report Type: Spontaneous
  Country: CA (occurrence: CA)
  Receive Date: 20230118
  Receipt Date: 20230118
  Transmission Date: 20230418
  Serious: Yes (Death, Other)
  Sender: FDA-Public Use
  Company Number: CA-PFIZER INC-202200705711

PATIENT
  Age: 51 Year
  Sex: Male
  Weight: 78.9 kg

DRUGS (3)
  1. INLYTA [Suspect]
     Active Substance: AXITINIB
     Indication: Metastatic renal cell carcinoma
     Dosage: 5 MG PO BID FOR 21 DAYS
     Route: 048
     Dates: start: 20220525
  2. INLYTA [Suspect]
     Active Substance: AXITINIB
     Dosage: 7 MG PO BID X 21 DAYS
     Route: 048
     Dates: start: 2022
  3. KEYTRUDA [Concomitant]
     Active Substance: PEMBROLIZUMAB
     Indication: Metastatic renal cell carcinoma
     Dosage: 2 MG/KG
     Route: 065

REACTIONS (4)
  - Death [Fatal]
  - Weight decreased [Not Recovered/Not Resolved]
  - Body surface area decreased [Unknown]
  - COVID-19 [Unknown]

NARRATIVE: CASE EVENT DATE: 20220101
